FAERS Safety Report 10437880 (Version 1)
Quarter: 2014Q3

REPORT INFORMATION
  Report Type: Spontaneous
  Country: US (occurrence: US)
  Receive Date: 20140908
  Receipt Date: 20140908
  Transmission Date: 20150326
  Serious: Yes (Other)
  Sender: FDA-Public Use
  Company Number: US-BRISTOL-MYERS SQUIBB COMPANY-21030366

PATIENT
  Age: 49 Year
  Sex: Male

DRUGS (3)
  1. ABILIFY [Suspect]
     Active Substance: ARIPIPRAZOLE
     Indication: DEPRESSION
     Dosage: 2008-2013?DOSE REDUCED TO 8MG THEN TO 2MG
     Dates: start: 2008, end: 2013
  2. LORAZEPAM. [Concomitant]
     Active Substance: LORAZEPAM
  3. LITHIUM [Concomitant]
     Active Substance: LITHIUM CARBONATE

REACTIONS (2)
  - Diabetes mellitus [Unknown]
  - Hallucination [Recovered/Resolved]
